FAERS Safety Report 11855509 (Version 4)
Quarter: 2016Q1

REPORT INFORMATION
  Report Type: Report from Study
  Country: JP (occurrence: JP)
  Receive Date: 20151221
  Receipt Date: 20160121
  Transmission Date: 20160526
  Serious: Yes (Hospitalization, Other)
  Sender: FDA-Public Use
  Company Number: JP-ROCHE-1679216

PATIENT
  Age: 72 Year
  Sex: Female

DRUGS (23)
  1. RITUXIMAB [Suspect]
     Active Substance: RITUXIMAB
     Dosage: 3ND CYCLE
     Route: 042
     Dates: start: 20151002
  2. CYCLOPHOSPHAMIDE. [Suspect]
     Active Substance: CYCLOPHOSPHAMIDE
     Indication: DIFFUSE LARGE B-CELL LYMPHOMA
     Dosage: DAILY 543-1148 MG/M2, 21-DAY CYCLES
     Route: 042
     Dates: start: 20150822, end: 20151205
  3. DOXORUBICIN [Suspect]
     Active Substance: DOXORUBICIN
     Indication: DIFFUSE LARGE B-CELL LYMPHOMA
     Dosage: 36-77 MG (21-DAY CYCLES)
     Route: 042
     Dates: start: 20150822, end: 20151205
  4. DOXORUBICIN [Suspect]
     Active Substance: DOXORUBICIN
     Dosage: 5TH CYCLE
     Route: 042
     Dates: start: 20151114, end: 20151204
  5. VINCRISTINE [Suspect]
     Active Substance: VINCRISTINE
     Dosage: 2ND CYCLE
     Route: 042
     Dates: start: 20150912
  6. BLINDED IBRUTINIB [Suspect]
     Active Substance: IBRUTINIB
     Indication: DIFFUSE LARGE B-CELL LYMPHOMA
     Dosage: (21-DAY CYCLES)
     Route: 048
     Dates: start: 20150821, end: 20151208
  7. DOXORUBICIN [Suspect]
     Active Substance: DOXORUBICIN
     Dosage: 2ND CYCLE
     Route: 042
     Dates: start: 20150912
  8. VINCRISTINE [Suspect]
     Active Substance: VINCRISTINE
     Indication: DIFFUSE LARGE B-CELL LYMPHOMA
     Dosage: 1-2 MG  (21-DAY CYCLES)
     Route: 042
     Dates: start: 20150822, end: 20151205
  9. PREDNISOLONE. [Suspect]
     Active Substance: PREDNISOLONE
     Indication: DIFFUSE LARGE B-CELL LYMPHOMA
     Dosage: 80-100 MG
     Route: 048
     Dates: start: 20150822, end: 20150916
  10. RITUXIMAB [Suspect]
     Active Substance: RITUXIMAB
     Dosage: 4TH CYCLE
     Route: 042
     Dates: start: 20151113
  11. DOXORUBICIN [Suspect]
     Active Substance: DOXORUBICIN
     Dosage: 4TH CYCLE
     Route: 042
     Dates: start: 20151024, end: 20151113
  12. VINCRISTINE [Suspect]
     Active Substance: VINCRISTINE
     Dosage: 4TH CYCLE
     Route: 042
     Dates: start: 20151024, end: 20151113
  13. VINCRISTINE [Suspect]
     Active Substance: VINCRISTINE
     Dosage: 5TH CYCLE
     Route: 042
     Dates: start: 20151114, end: 20151204
  14. RITUXIMAB [Suspect]
     Active Substance: RITUXIMAB
     Dosage: 2ND CYCLE
     Route: 042
     Dates: start: 20150911, end: 20151002
  15. RITUXIMAB [Suspect]
     Active Substance: RITUXIMAB
     Dosage: 4TH CYCLE
     Route: 042
     Dates: start: 20151023
  16. CYCLOPHOSPHAMIDE. [Suspect]
     Active Substance: CYCLOPHOSPHAMIDE
     Dosage: 5TH CYCLE
     Route: 042
     Dates: start: 20151114, end: 20151204
  17. VINCRISTINE [Suspect]
     Active Substance: VINCRISTINE
     Dosage: 6TH CYCLE
     Route: 042
     Dates: start: 20151205
  18. RITUXIMAB [Suspect]
     Active Substance: RITUXIMAB
     Indication: DIFFUSE LARGE B-CELL LYMPHOMA
     Dosage: 465-574 MG DAILY
     Route: 042
     Dates: start: 20150821, end: 20151204
  19. CYCLOPHOSPHAMIDE. [Suspect]
     Active Substance: CYCLOPHOSPHAMIDE
     Dosage: SECOND CYCLE
     Route: 042
     Dates: start: 20150912
  20. CYCLOPHOSPHAMIDE. [Suspect]
     Active Substance: CYCLOPHOSPHAMIDE
     Dosage: 4TH CYCLE
     Route: 042
     Dates: start: 20151024, end: 20151113
  21. CYCLOPHOSPHAMIDE. [Suspect]
     Active Substance: CYCLOPHOSPHAMIDE
     Dosage: 6TH CYCLE
     Route: 042
     Dates: start: 20151205
  22. DOXORUBICIN [Suspect]
     Active Substance: DOXORUBICIN
     Dosage: 6TH CYCLE
     Route: 042
     Dates: start: 20151205
  23. PREDNISOLONE. [Suspect]
     Active Substance: PREDNISOLONE
     Dosage: 2ND CYCLE
     Route: 048
     Dates: start: 20150912, end: 20150916

REACTIONS (2)
  - Platelet count decreased [Unknown]
  - Colitis [Recovered/Resolved]

NARRATIVE: CASE EVENT DATE: 20151207
